FAERS Safety Report 4457337-X (Version None)
Quarter: 2004Q3

REPORT INFORMATION
  Report Type: 
  Country: None (occurrence: None)
  Receive Date: 20040922
  Receipt Date: 20040913
  Transmission Date: 20050211
  Serious: Yes (Death)
  Sender: FDA-Public Use
  Company Number: US-JNJFOC-20040903434

PATIENT
  Age: 18 Month
  Sex: Male

DRUGS (1)
  1. EXTRA STRENGTH TYLENOL [Suspect]
     Indication: MURDER
     Dosage: ORAL
     Route: 048

REACTIONS (3)
  - DRUG TOXICITY [None]
  - RESPIRATORY ARREST [None]
  - VICTIM OF HOMICIDE [None]
